FAERS Safety Report 22140433 (Version 1)
Quarter: 2023Q1

REPORT INFORMATION
  Report Type: Spontaneous
  Country: US (occurrence: None)
  Receive Date: 20230324
  Receipt Date: 20230324
  Transmission Date: 20230418
  Serious: Yes (Death)
  Sender: FDA-Public Use
  Company Number: None

PATIENT
  Age: 75 Year
  Sex: Female
  Weight: 91.8 kg

DRUGS (20)
  1. REVLIMID [Suspect]
     Active Substance: LENALIDOMIDE
     Indication: Plasma cell myeloma
     Dosage: FREQUENCY : DAILY;?
     Route: 048
     Dates: start: 20190729, end: 20230301
  2. albuterol sulfate 2.5 mg/3 mL (0.083 %) solution for nebulization [Concomitant]
  3. ATORVASTATIN [Concomitant]
     Active Substance: ATORVASTATIN
  4. calcitriol 0.25 mcg capsule [Concomitant]
  5. colesevelam 625 mg table [Concomitant]
  6. dexamethasone 4 mg table [Concomitant]
  7. duloxetine 30 mg capsule,delayed release [Concomitant]
  8. ELIQUIS [Concomitant]
     Active Substance: APIXABAN
  9. famotidine 20 mg tablet [Concomitant]
  10. FUROSEMIDE [Concomitant]
     Active Substance: FUROSEMIDE
  11. iron 325 mg [Concomitant]
  12. Lidoderm 5 % topical patch [Concomitant]
  13. Lumigan 0.01 % eye drops [Concomitant]
  14. magnesium 250 mg tablet [Concomitant]
  15. METOPROLOL TARTRATE [Concomitant]
     Active Substance: METOPROLOL TARTRATE
  16. Plavix 75 mg tablet [Concomitant]
  17. potassium chloride ER 20 mEq [Concomitant]
  18. spironolactone 25 mg tablet [Concomitant]
  19. tramadol 50 mg tablet [Concomitant]
  20. Vitamin D 2,000 unit Cap [Concomitant]

REACTIONS (15)
  - Dyspnoea [None]
  - Hypoxia [None]
  - Atrial fibrillation [None]
  - Hypotension [None]
  - Pleural effusion [None]
  - Cardiac failure congestive [None]
  - Renal impairment [None]
  - Haemodialysis [None]
  - Blood potassium decreased [None]
  - Cardiac arrest [None]
  - Vascular graft [None]
  - Vascular stent thrombosis [None]
  - Haemodynamic instability [None]
  - Lactic acidosis [None]
  - Ischaemic hepatitis [None]

NARRATIVE: CASE EVENT DATE: 20230303
